FAERS Safety Report 8830782 (Version 2)
Quarter: 2013Q1

REPORT INFORMATION
  Report Type: Spontaneous
  Country: US (occurrence: US)
  Receive Date: 20121009
  Receipt Date: 20130128
  Transmission Date: 20140127
  Serious: No
  Sender: FDA-Public Use
  Company Number: US-009507513-1210USA003350

PATIENT
  Sex: Female
  Weight: 56.69 kg

DRUGS (2)
  1. MIRALAX [Suspect]
     Indication: PRODUCT USED FOR UNKNOWN INDICATION
     Dosage: 17 G, UNKNOWN
     Route: 048
     Dates: start: 2008, end: 2010
  2. MIRALAX [Suspect]
     Indication: MEDICAL OBSERVATION

REACTIONS (2)
  - Drug ineffective [Unknown]
  - Incorrect drug administration duration [Unknown]
